FAERS Safety Report 18690033 (Version 1)
Quarter: 2020Q4

REPORT INFORMATION
  Report Type: Spontaneous
  Country: FR (occurrence: FR)
  Receive Date: 20201231
  Receipt Date: 20201231
  Transmission Date: 20210114
  Serious: Yes (Hospitalization, Other)
  Sender: FDA-Public Use
  Company Number: FR-TEVA-2020-FR-1864068

PATIENT
  Age: 90 Year
  Sex: Male
  Weight: 67 kg

DRUGS (20)
  1. ALPRAZOLAM. [Suspect]
     Active Substance: ALPRAZOLAM
     Dosage: 1 MILLIGRAM DAILY;
     Route: 048
     Dates: start: 20170731, end: 20170731
  2. FUROSEMIDE. [Suspect]
     Active Substance: FUROSEMIDE
     Indication: DIURETIC THERAPY
     Dosage: 20 MILLIGRAM DAILY;
     Route: 048
     Dates: start: 20170802
  3. WARFARIN SODIUM. [Suspect]
     Active Substance: WARFARIN SODIUM
     Dosage: 4 MILLIGRAM DAILY;
     Route: 048
     Dates: start: 20170803, end: 20170806
  4. APIXABAN [Suspect]
     Active Substance: APIXABAN
     Dosage: UNK
     Route: 065
  5. ACETYLSALICYLIC ACID [Suspect]
     Active Substance: ASPIRIN
     Dosage: 75 MILLIGRAM DAILY;
     Route: 048
     Dates: start: 20170701, end: 20170820
  6. ALPRAZOLAM. [Suspect]
     Active Substance: ALPRAZOLAM
     Dosage: 0.125 MILLIGRAM DAILY , UNIT DOSE : 0.13 MG
     Route: 065
     Dates: start: 20170808, end: 20170808
  7. AMIODARONE [Suspect]
     Active Substance: AMIODARONE
     Indication: ARRHYTHMIA PROPHYLAXIS
     Dosage: 200 MILLIGRAM DAILY;
     Route: 048
     Dates: start: 20170731
  8. WARFARIN SODIUM. [Suspect]
     Active Substance: WARFARIN SODIUM
     Dosage: 4 MILLIGRAM DAILY;
     Route: 048
     Dates: start: 20170819
  9. DIFFU K [Suspect]
     Active Substance: POTASSIUM CHLORIDE
     Dosage: 1800 MILLIGRAM DAILY;
     Route: 048
     Dates: start: 20170818
  10. ALPRAZOLAM. [Suspect]
     Active Substance: ALPRAZOLAM
     Dosage: .5 MILLIGRAM DAILY;
     Route: 065
     Dates: start: 20170809, end: 20170810
  11. TRAMADOL. [Suspect]
     Active Substance: TRAMADOL
     Dosage: 50 MILLIGRAM DAILY;
     Route: 048
     Dates: start: 20170816, end: 20170816
  12. PARACETAMOL [Suspect]
     Active Substance: ACETAMINOPHEN
     Dosage: 2000 MILLIGRAM DAILY;
     Route: 048
     Dates: start: 20170801, end: 20170802
  13. FUROSEMIDE. [Suspect]
     Active Substance: FUROSEMIDE
     Dosage: 20 MILLIGRAM DAILY;
     Route: 048
     Dates: start: 20170730, end: 20170731
  14. SPASFON [PHLOROGLUCINOL] [Concomitant]
     Active Substance: PHLOROGLUCINOL
     Indication: PROPHYLAXIS
     Dosage: 480 MILLIGRAM DAILY;
     Route: 048
     Dates: start: 20170805
  15. PRAVASTATIN SODIUM. [Suspect]
     Active Substance: PRAVASTATIN SODIUM
     Indication: DYSLIPIDAEMIA
     Dosage: 10 MILLIGRAM DAILY;
     Route: 048
     Dates: start: 20170729
  16. PANTOPRAZOLE [Suspect]
     Active Substance: PANTOPRAZOLE
     Indication: GASTROOESOPHAGEAL REFLUX PROPHYLAXIS
     Dosage: 40 MILLIGRAM DAILY;
     Route: 048
     Dates: start: 20170806
  17. TRAMADOL. [Suspect]
     Active Substance: TRAMADOL
     Indication: ANTIINFLAMMATORY THERAPY
     Dosage: 50 MILLIGRAM DAILY;
     Route: 048
     Dates: start: 20170820, end: 20170821
  18. TAMSULOSIN [Suspect]
     Active Substance: TAMSULOSIN
     Dosage: .4 MILLIGRAM DAILY;
     Route: 048
     Dates: start: 20170730
  19. PARACETAMOL [Suspect]
     Active Substance: ACETAMINOPHEN
     Indication: ANALGESIC THERAPY
     Dosage: 2000 MILLIGRAM DAILY;
     Route: 048
     Dates: start: 20170812
  20. SYMBICORT [Suspect]
     Active Substance: BUDESONIDE\FORMOTEROL FUMARATE DIHYDRATE
     Dosage: UNK
     Route: 048
     Dates: start: 20170729

REACTIONS (5)
  - Rectal haemorrhage [Recovered/Resolved]
  - Atrioventricular block [Recovered/Resolved]
  - Arteriovenous fistula [Recovered/Resolved]
  - Puncture site haematoma [Recovered/Resolved]
  - Femoral artery aneurysm [Recovered/Resolved]

NARRATIVE: CASE EVENT DATE: 20170803
